FAERS Safety Report 5309635-5 (Version None)
Quarter: 2007Q2

REPORT INFORMATION
  Report Type: 
  Country: None (occurrence: None)
  Receive Date: 20070427
  Receipt Date: 20060619
  Transmission Date: 20071010
  Serious: No
  Sender: FDA-Public Use
  Company Number: US-GLAXOSMITHKLINE-A0609552A

PATIENT
  Age: 5 Year
  Sex: Male

DRUGS (2)
  1. DEXEDRINE [Suspect]
     Indication: ATTENTION DEFICIT/HYPERACTIVITY DISORDER
     Dosage: 10MG PER DAY
     Route: 048
     Dates: start: 20030101, end: 20030101
  2. DEXEDRINE [Concomitant]

REACTIONS (1)
  - DRUG INEFFECTIVE [None]
